FAERS Safety Report 7346949-1 (Version None)
Quarter: 2011Q1

REPORT INFORMATION
  Report Type: 
  Country: None (occurrence: None)
  Receive Date: 20110311
  Receipt Date: 20110302
  Transmission Date: 20110831
  Serious: Yes (Hospitalization)
  Sender: FDA-Public Use
  Company Number: CA-JNJFOC-20110301554

PATIENT
  Age: 91 Year
  Sex: Female

DRUGS (3)
  1. DURAGESIC-50 [Suspect]
     Indication: PRODUCT USED FOR UNKNOWN INDICATION
     Route: 062
     Dates: start: 20110110
  2. DURAGESIC-50 [Suspect]
     Route: 062
     Dates: start: 20110110
  3. TYLENOL [Concomitant]
     Route: 065

REACTIONS (8)
  - HEART RATE DECREASED [None]
  - CONFUSIONAL STATE [None]
  - SOMNOLENCE [None]
  - EMOTIONAL DISORDER [None]
  - DEHYDRATION [None]
  - CRYING [None]
  - WRONG TECHNIQUE IN DRUG USAGE PROCESS [None]
  - ANGER [None]
